FAERS Safety Report 6186121-4 (Version None)
Quarter: 2009Q2

REPORT INFORMATION
  Report Type: 
  Country: None (occurrence: None)
  Receive Date: 20090511
  Receipt Date: 20090501
  Transmission Date: 20091009
  Serious: Yes (Hospitalization)
  Sender: FDA-Public Use
  Company Number: US-WYE-H08778409

PATIENT
  Sex: Female
  Weight: 77.63 kg

DRUGS (9)
  1. LAPATINIB [Suspect]
     Indication: BREAST CANCER
     Route: 048
     Dates: start: 20090211, end: 20090301
  2. LAPATINIB [Suspect]
     Dosage: UNKNOWN
     Route: 048
     Dates: start: 20090301
  3. FOSAMAX [Concomitant]
  4. FISH OIL [Concomitant]
  5. VITAMIN D [Concomitant]
  6. ASCORBIC ACID [Concomitant]
  7. CAPECITABINE [Suspect]
     Indication: BREAST CANCER
     Route: 048
     Dates: start: 20090211, end: 20090301
  8. CAPECITABINE [Suspect]
     Dosage: UNKNOWN
     Route: 048
     Dates: start: 20090301
  9. LOTREL [Concomitant]

REACTIONS (1)
  - RENAL FAILURE ACUTE [None]
